FAERS Safety Report 8909260 (Version 1)
Quarter: 2012Q4

REPORT INFORMATION
  Report Type: Spontaneous
  Country: US (occurrence: None)
  Receive Date: 20121107
  Receipt Date: 20121107
  Transmission Date: 20130627
  Serious: Yes (Hospitalization)
  Sender: FDA-Public Use
  Company Number: 2010139191

PATIENT
  Age: 38 Year
  Sex: Female
  Weight: 90.3 kg

DRUGS (1)
  1. DALTEPARIN SODIUM (DALTEPARIN SODIUM) UNKNOWN [Suspect]
     Indication: DVT
     Route: 058
     Dates: start: 20101001, end: 20101028

REACTIONS (2)
  - Cerebrovascular accident [None]
  - General physical health deterioration [None]
